FAERS Safety Report 7929284-X (Version None)
Quarter: 2011Q4

REPORT INFORMATION
  Report Type: 
  Country: None (occurrence: None)
  Receive Date: 20111121
  Receipt Date: 20111114
  Transmission Date: 20120403
  Serious: No
  Sender: FDA-Public Use
  Company Number: US-BIOGENIDEC-2011BI033612

PATIENT
  Age: 41 Year
  Sex: Female

DRUGS (2)
  1. TYSABRI [Suspect]
     Indication: MULTIPLE SCLEROSIS
     Route: 042
     Dates: start: 20110406, end: 20110727
  2. MACROBID [Concomitant]

REACTIONS (5)
  - PRURITUS [None]
  - URTICARIA [None]
  - CELLULITIS [None]
  - LIVER FUNCTION TEST ABNORMAL [None]
  - CHROMATURIA [None]
